FAERS Safety Report 5791335-9 (Version None)
Quarter: 2008Q2

REPORT INFORMATION
  Report Type: 
  Country: None (occurrence: None)
  Receive Date: 20080626
  Receipt Date: 20080318
  Transmission Date: 20081010
  Serious: No
  Sender: FDA-Public Use
  Company Number: A0712862A

PATIENT
  Age: 53 Year
  Sex: Male

DRUGS (4)
  1. ALLI [Suspect]
  2. ZETIA [Concomitant]
  3. METOPROLOL [Concomitant]
  4. UNKNOWN [Concomitant]

REACTIONS (7)
  - ABDOMINAL PAIN [None]
  - CONSTIPATION [None]
  - DIVERTICULUM [None]
  - FLATULENCE [None]
  - MUSCLE SPASMS [None]
  - PAIN [None]
  - PHARMACEUTICAL PRODUCT COMPLAINT [None]
